FAERS Safety Report 13082348 (Version 1)
Quarter: 2017Q1

REPORT INFORMATION
  Report Type: Spontaneous
  Country: FR (occurrence: FR)
  Receive Date: 20170103
  Receipt Date: 20170103
  Transmission Date: 20170428
  Serious: Yes (Hospitalization)
  Sender: FDA-Public Use
  Company Number: FR-MYLANLABS-2016M1058556

PATIENT

DRUGS (1)
  1. FENOFIBRATE MYLAN 145 MG, COMPRIM? [Suspect]
     Active Substance: FENOFIBRATE
     Indication: HYPERTRIGLYCERIDAEMIA
     Dosage: 145 MG, QD
     Route: 048
     Dates: start: 20160729, end: 20160804

REACTIONS (3)
  - Dyshidrotic eczema [Recovering/Resolving]
  - Rash papular [Recovering/Resolving]
  - Vascular purpura [Recovering/Resolving]
